FAERS Safety Report 8291664-3 (Version None)
Quarter: 2012Q2

REPORT INFORMATION
  Report Type: 
  Country: None (occurrence: None)
  Receive Date: 20120417
  Receipt Date: 20120224
  Transmission Date: 20120825
  Serious: No
  Sender: FDA-Public Use
  Company Number: US-ASTRAZENECA-2012SE02141

PATIENT
  Age: 51 Year
  Sex: Male

DRUGS (2)
  1. NEXIUM [Suspect]
     Route: 048
  2. OMEPRAZOLE [Suspect]
     Dosage: GENERIC PRILOSEC
     Route: 048

REACTIONS (5)
  - DIVERTICULITIS [None]
  - ULCER [None]
  - DRUG INEFFECTIVE [None]
  - GASTROOESOPHAGEAL REFLUX DISEASE [None]
  - VIRAL INFECTION [None]
